FAERS Safety Report 8343814-8 (Version None)
Quarter: 2012Q2

REPORT INFORMATION
  Report Type: 
  Country: None (occurrence: None)
  Receive Date: 20120508
  Receipt Date: 20120430
  Transmission Date: 20120825
  Serious: Yes (Hospitalization)
  Sender: FDA-Public Use
  Company Number: US-BAYER-2012-039964

PATIENT
  Age: 36 Year
  Sex: Female

DRUGS (3)
  1. YAZ [Suspect]
     Indication: ACNE
     Dosage: UNK
     Route: 048
     Dates: start: 20080701
  2. ALLEGRA-D 12 HOUR [Concomitant]
     Dosage: 60 MG, PRN
  3. YAZ [Suspect]
     Indication: DYSFUNCTIONAL UTERINE BLEEDING

REACTIONS (5)
  - PAIN [None]
  - INJURY [None]
  - ANXIETY [None]
  - PULMONARY EMBOLISM [None]
  - FEAR [None]
